FAERS Safety Report 10025970 (Version 2)
Quarter: 2014Q2

REPORT INFORMATION
  Report Type: Spontaneous
  Country: DE (occurrence: DE)
  Receive Date: 20140320
  Receipt Date: 20140414
  Transmission Date: 20141212
  Serious: Yes (Hospitalization, Other)
  Sender: FDA-Public Use
  Company Number: DE-009507513-1403DEU009083

PATIENT
  Age: 51 Year
  Sex: Male
  Weight: 92 kg

DRUGS (5)
  1. SITAGLIPTIN PHOSPHATE [Suspect]
     Indication: TYPE 2 DIABETES MELLITUS
     Dosage: UNK
     Route: 048
     Dates: start: 201006, end: 201401
  2. VICTOZA [Suspect]
     Indication: TYPE 2 DIABETES MELLITUS
     Dosage: UNK
     Route: 051
     Dates: start: 20140113, end: 20140118
  3. METFORMIN [Concomitant]
     Indication: TYPE 2 DIABETES MELLITUS
     Dosage: UNK
     Route: 048
     Dates: start: 201006, end: 201401
  4. METFORMIN [Concomitant]
     Dosage: 500 MG, BID
     Dates: start: 201401
  5. THYROXIN [Concomitant]
     Indication: THYROID HORMONE REPLACEMENT THERAPY

REACTIONS (3)
  - Diabetes mellitus inadequate control [Recovered/Resolved]
  - Pancreatic pseudocyst [Unknown]
  - Pancreatitis [Unknown]
